FAERS Safety Report 25089605 (Version 1)
Quarter: 2025Q1

REPORT INFORMATION
  Report Type: Spontaneous
  Country: US (occurrence: US)
  Receive Date: 20250318
  Receipt Date: 20250318
  Transmission Date: 20250409
  Serious: No
  Sender: BAYER HEALTHCARE PHARMACEUTICALS INC.
  Company Number: US-BAYER-2025A034118

PATIENT
  Sex: Female

DRUGS (1)
  1. KYLEENA [Suspect]
     Active Substance: LEVONORGESTREL
     Dosage: 17.5?G/DAY
     Route: 015
     Dates: start: 2024

REACTIONS (6)
  - Feeling abnormal [None]
  - Weight increased [None]
  - Mood altered [None]
  - Depressed mood [None]
  - Acne [None]
  - Pain in extremity [None]

NARRATIVE: CASE EVENT DATE: 20250311
